FAERS Safety Report 15603850 (Version 1)
Quarter: 2018Q4

REPORT INFORMATION
  Report Type: Spontaneous
  Country: EG (occurrence: EG)
  Receive Date: 20181109
  Receipt Date: 20181109
  Transmission Date: 20190205
  Serious: Yes (Other)
  Sender: FDA-Public Use
  Company Number: EG-GILEAD-2018-0373310

PATIENT
  Age: 56 Year
  Sex: Male

DRUGS (5)
  1. SOVALDI [Suspect]
     Active Substance: SOFOSBUVIR
     Indication: CHRONIC HEPATITIS C
     Dosage: 400 MG
     Route: 065
     Dates: start: 201602, end: 201608
  2. RIBAVIRIN. [Suspect]
     Active Substance: RIBAVIRIN
     Dosage: UNK
     Route: 065
     Dates: start: 201612, end: 201706
  3. DACLATASVIR. [Suspect]
     Active Substance: DACLATASVIR
     Indication: CHRONIC HEPATITIS C
     Dosage: UNK
     Route: 065
     Dates: start: 201612, end: 201706
  4. SOVALDI [Suspect]
     Active Substance: SOFOSBUVIR
     Dosage: 400 UNK
     Route: 065
     Dates: start: 201612, end: 201706
  5. RIBAVIRIN. [Suspect]
     Active Substance: RIBAVIRIN
     Indication: CHRONIC HEPATITIS C
     Dosage: UNK
     Route: 065
     Dates: start: 201602, end: 201608

REACTIONS (3)
  - Hepatocellular carcinoma [Unknown]
  - Drug ineffective [Unknown]
  - Hepatitis C [Unknown]
